FAERS Safety Report 8665064 (Version 2)
Quarter: 2013Q4

REPORT INFORMATION
  Report Type: Spontaneous
  Country: PH (occurrence: PH)
  Receive Date: 20120716
  Receipt Date: 20131031
  Transmission Date: 20140711
  Serious: Yes (Death)
  Sender: FDA-Public Use
  Company Number: PH-009507513-1207PHL001222

PATIENT
  Sex: Male

DRUGS (1)
  1. JANUMET [Suspect]
     Dosage: 1 DF, QD
     Route: 048
     Dates: start: 201207

REACTIONS (2)
  - Lung neoplasm malignant [Fatal]
  - Inappropriate schedule of drug administration [Unknown]
